FAERS Safety Report 8612609-X (Version None)
Quarter: 2012Q3

REPORT INFORMATION
  Report Type: 
  Country: None (occurrence: None)
  Receive Date: 20120822
  Receipt Date: 20110909
  Transmission Date: 20120928
  Serious: No
  Sender: FDA-Public Use
  Company Number: US-ASTRAZENECA-2011SE54533

PATIENT
  Age: 42 Year
  Sex: Female

DRUGS (2)
  1. PLAQUENIL [Concomitant]
  2. SYMBICORT [Suspect]
     Route: 055

REACTIONS (2)
  - MALAISE [None]
  - SYSTEMIC LUPUS ERYTHEMATOSUS [None]
